FAERS Safety Report 6212055-2 (Version None)
Quarter: 2009Q2

REPORT INFORMATION
  Report Type: 
  Country: None (occurrence: None)
  Receive Date: 20090602
  Receipt Date: 20090521
  Transmission Date: 20091009
  Serious: Yes (Hospitalization)
  Sender: FDA-Public Use
  Company Number: CO-PFIZER INC-2008053083

PATIENT
  Age: 70 Year

DRUGS (5)
  1. CHAMPIX [Suspect]
     Indication: SMOKING CESSATION THERAPY
     Dosage: 1 MG, 2X/DAY
     Route: 048
     Dates: start: 20080505, end: 20080514
  2. CENTRUM [Concomitant]
     Dosage: UNK
  3. CALCIUM [Concomitant]
     Dosage: UNK
  4. ANEMIDOX [Concomitant]
     Dosage: UNK
  5. ZOLPIDEM TARTRATE [Concomitant]
     Dosage: UNK

REACTIONS (7)
  - ANXIETY [None]
  - CONSTIPATION [None]
  - DYSPEPSIA [None]
  - FEELING ABNORMAL [None]
  - GASTROINTESTINAL NECROSIS [None]
  - INSOMNIA [None]
  - STRESS [None]
